FAERS Safety Report 6259871-9 (Version None)
Quarter: 2009Q3

REPORT INFORMATION
  Report Type: 
  Country: None (occurrence: None)
  Receive Date: 20090708
  Receipt Date: 20090701
  Transmission Date: 20100115
  Serious: Yes (Other)
  Sender: FDA-Public Use
  Company Number: NL-BAYER-200924764GPV

PATIENT

DRUGS (2)
  1. MABCAMPATH [Suspect]
     Indication: CHRONIC LYMPHOCYTIC LEUKAEMIA
     Route: 065
     Dates: end: 20090101
  2. MABCAMPATH [Suspect]
     Route: 065
     Dates: start: 20090101, end: 20090101

REACTIONS (2)
  - BONE MARROW FAILURE [None]
  - SPEECH DISORDER [None]
